FAERS Safety Report 11795452 (Version 2)
Quarter: 2016Q1

REPORT INFORMATION
  Report Type: Spontaneous
  Country: US (occurrence: US)
  Receive Date: 20151202
  Receipt Date: 20160223
  Transmission Date: 20160525
  Serious: No
  Sender: FDA-Public Use
  Company Number: US-TEVA-610988USA

PATIENT
  Sex: Male

DRUGS (1)
  1. COPAXONE [Suspect]
     Active Substance: GLATIRAMER ACETATE
     Dosage: UNKNOWN FORM STRENGTH
     Route: 065

REACTIONS (3)
  - Injection site atrophy [Unknown]
  - Injection site pain [Unknown]
  - Injection site urticaria [Recovered/Resolved]

NARRATIVE: CASE EVENT DATE: 201511
